FAERS Safety Report 24728811 (Version 3)
Quarter: 2025Q3

REPORT INFORMATION
  Report Type: Spontaneous
  Country: EU (occurrence: EU)
  Receive Date: 20241212
  Receipt Date: 20250810
  Transmission Date: 20251021
  Serious: Yes (Hospitalization, Other)
  Sender: ALEXION PHARMACEUTICALS
  Company Number: EU-SANOFI-02331194

PATIENT
  Age: 1 Month
  Sex: Male

DRUGS (11)
  1. BEYFORTUS [Suspect]
     Active Substance: NIRSEVIMAB-ALIP
     Indication: Antiviral prophylaxis
     Route: 065
     Dates: start: 20241204, end: 20241204
  2. DEXTROSE [Concomitant]
     Active Substance: DEXTROSE MONOHYDRATE
     Route: 065
  3. CLAFORAN [Concomitant]
     Active Substance: CEFOTAXIME SODIUM
     Route: 065
  4. DIMETHINDENE [Concomitant]
     Active Substance: DIMETHINDENE
     Indication: Pruritus
     Route: 065
  5. METAMIZOLE [Concomitant]
     Active Substance: METAMIZOLE
     Route: 065
  6. MIDAZOLAM [Concomitant]
     Active Substance: MIDAZOLAM
     Route: 065
  7. ZYMAFLUOR D [Concomitant]
     Indication: Rickets
     Route: 065
  8. NALBUPHINE [Concomitant]
     Active Substance: NALBUPHINE
     Route: 065
  9. AMPICILLIN [Concomitant]
     Active Substance: AMPICILLIN
     Route: 065
  10. ACYCLOVIR [Concomitant]
     Active Substance: ACYCLOVIR
     Route: 065
  11. PREDNICARBATE [Concomitant]
     Active Substance: PREDNICARBATE
     Indication: Erythema multiforme
     Route: 065

REACTIONS (15)
  - Urticaria [Unknown]
  - Erythema [Unknown]
  - Oedema peripheral [Unknown]
  - Feeling hot [Unknown]
  - Irritability [Unknown]
  - Crying [Unknown]
  - Rash [Unknown]
  - Erythema multiforme [Unknown]
  - Leukocytosis [Unknown]
  - Hyperaesthesia [Unknown]
  - SARS-CoV-2 test positive [Unknown]
  - Abnormal faeces [Unknown]
  - Vaccination complication [Unknown]
  - C-reactive protein increased [Unknown]
  - Pyrexia [Unknown]

NARRATIVE: CASE EVENT DATE: 20241201
